FAERS Safety Report 19180962 (Version 2)
Quarter: 2022Q3

REPORT INFORMATION
  Report Type: Report from Study
  Country: JP (occurrence: JP)
  Receive Date: 20210426
  Receipt Date: 20220922
  Transmission Date: 20221027
  Serious: Yes (Death, Other)
  Sender: FDA-Public Use
  Company Number: JP-PFIZER INC-2018263297

PATIENT
  Age: 47 Year
  Sex: Female
  Weight: 45 kg

DRUGS (20)
  1. BESPONSA [Suspect]
     Active Substance: INOTUZUMAB OZOGAMICIN
     Indication: Acute lymphocytic leukaemia recurrent
     Dosage: 0.8 MG, 1X/DAY, CYCLE 1
     Dates: start: 20180614, end: 20180614
  2. BESPONSA [Suspect]
     Active Substance: INOTUZUMAB OZOGAMICIN
     Dosage: 0.5 MG, 1X/DAY, CYCLE 1
     Route: 041
     Dates: start: 20180621, end: 20180621
  3. BESPONSA [Suspect]
     Active Substance: INOTUZUMAB OZOGAMICIN
     Dosage: 0.5 MG, 1X/DAY, CYCLE 1
     Route: 041
     Dates: start: 20180628, end: 20180628
  4. BESPONSA [Suspect]
     Active Substance: INOTUZUMAB OZOGAMICIN
     Dosage: 0.8 MG, 1X/DAY, CYCLE 2
     Route: 041
     Dates: start: 20180705, end: 20180705
  5. BESPONSA [Suspect]
     Active Substance: INOTUZUMAB OZOGAMICIN
     Dosage: 0.5 MG, 1X/DAY, CYCLE 2
     Route: 041
     Dates: start: 20180719, end: 20180719
  6. BESPONSA [Suspect]
     Active Substance: INOTUZUMAB OZOGAMICIN
     Dosage: 0.5 MG, 1X/DAY, CYCLE 2
     Route: 041
     Dates: start: 20180726, end: 20180726
  7. BESPONSA [Suspect]
     Active Substance: INOTUZUMAB OZOGAMICIN
     Dosage: 0.5 MG, 1X/DAY, CYCLE 3
     Route: 041
     Dates: start: 20180816, end: 20180816
  8. BESPONSA [Suspect]
     Active Substance: INOTUZUMAB OZOGAMICIN
     Dosage: 0.5 MG, 1X/DAY, CYCLE 3
     Route: 041
     Dates: start: 20180823, end: 20180823
  9. BESPONSA [Suspect]
     Active Substance: INOTUZUMAB OZOGAMICIN
     Dosage: 0.5 MG, 1X/DAY, CYCLE 3
     Route: 041
     Dates: start: 20180830, end: 20180830
  10. BESPONSA [Suspect]
     Active Substance: INOTUZUMAB OZOGAMICIN
     Dosage: 0.5 MG, 1X/DAY, CYCLE 4
     Route: 041
     Dates: start: 20180913, end: 20180913
  11. BESPONSA [Suspect]
     Active Substance: INOTUZUMAB OZOGAMICIN
     Dosage: 0.5 MG, 1X/DAY, CYCLE 4
     Route: 041
     Dates: start: 20180920, end: 20180920
  12. BESPONSA [Suspect]
     Active Substance: INOTUZUMAB OZOGAMICIN
     Dosage: 0.5 MG, 1X/DAY, CYCLE 5
     Route: 041
     Dates: start: 20190306, end: 20190306
  13. BESPONSA [Suspect]
     Active Substance: INOTUZUMAB OZOGAMICIN
     Dosage: 0.5 MG, 1X/DAY, CYCLE 5
     Route: 041
     Dates: start: 20190313, end: 20190313
  14. BESPONSA [Suspect]
     Active Substance: INOTUZUMAB OZOGAMICIN
     Dosage: 0.5 MG, 1X/DAY, CYCLE 5
     Route: 041
     Dates: start: 20190325, end: 20190325
  15. METHOTREXATE [Concomitant]
     Active Substance: METHOTREXATE
     Indication: Acute lymphocytic leukaemia recurrent
     Dosage: UNK
     Route: 037
     Dates: start: 20180806
  16. DEXAMETHASONE SODIUM PHOSPHATE [Concomitant]
     Active Substance: DEXAMETHASONE SODIUM PHOSPHATE
     Indication: Acute lymphocytic leukaemia recurrent
     Dosage: UNK
     Route: 037
     Dates: start: 20180806
  17. ONCOVIN [Concomitant]
     Active Substance: VINCRISTINE SULFATE
     Indication: Acute lymphocytic leukaemia recurrent
     Dosage: UNK
     Dates: start: 20180809
  18. DOXORUBICIN [Concomitant]
     Active Substance: DOXORUBICIN
     Indication: Acute lymphocytic leukaemia recurrent
     Dosage: UNK
     Dates: start: 20180814
  19. CYCLOPHOSPHAMIDE [Concomitant]
     Active Substance: CYCLOPHOSPHAMIDE
     Indication: Acute lymphocytic leukaemia recurrent
     Dosage: UNK
     Dates: start: 20180814
  20. PREDNISOLONE SODIUM SUCCINATE [Concomitant]
     Active Substance: PREDNISOLONE SODIUM SUCCINATE
     Indication: Acute lymphocytic leukaemia recurrent
     Dosage: UNK
     Dates: start: 20180806

REACTIONS (7)
  - Neoplasm progression [Fatal]
  - Platelet count decreased [Recovering/Resolving]
  - Facial paralysis [Recovered/Resolved]
  - Neutrophil count decreased [Recovered/Resolved]
  - Pyrexia [Recovered/Resolved]
  - Amylase increased [Recovered/Resolved]
  - Full blood count abnormal [Unknown]

NARRATIVE: CASE EVENT DATE: 20180101
